FAERS Safety Report 19075034 (Version 1)
Quarter: 2021Q1

REPORT INFORMATION
  Report Type: Other
  Country: SE (occurrence: SE)
  Receive Date: 20210331
  Receipt Date: 20210331
  Transmission Date: 20210420
  Serious: Yes (Other)
  Sender: FDA-Public Use
  Company Number: SE-CELLTRION INC.-2021SE004050

PATIENT

DRUGS (3)
  1. PAPAVERIN [Concomitant]
     Active Substance: PAPAVERINE
     Dosage: 40 MG
     Dates: start: 20200611
  2. REMSIMA [Suspect]
     Active Substance: INFLIXIMAB
     Dosage: 350 MG, DOS 1 2020?10?01 DOS 2 2020?10?20
     Route: 042
     Dates: start: 20201001, end: 20201020
  3. REMSIMA [Suspect]
     Active Substance: INFLIXIMAB
     Indication: PRODUCT USED FOR UNKNOWN INDICATION
     Dosage: 350 MG, DOS 1 2020?10?01 DOS 2 2020?10?20
     Route: 042
     Dates: start: 20201001, end: 20201020

REACTIONS (8)
  - Chest discomfort [Recovered/Resolved]
  - Dyskinesia [Recovered/Resolved]
  - Dyspnoea [Recovered/Resolved]
  - Malaise [Recovered/Resolved]
  - Formication [Recovered/Resolved]
  - Erythema [Recovered/Resolved]
  - Pain in jaw [Recovered/Resolved]
  - Tremor [Recovered/Resolved]

NARRATIVE: CASE EVENT DATE: 20201009
